FAERS Safety Report 15340596 (Version 4)
Quarter: 2018Q4

REPORT INFORMATION
  Report Type: Report from Study
  Country: US (occurrence: US)
  Receive Date: 20180831
  Receipt Date: 20181218
  Transmission Date: 20190204
  Serious: Yes (Hospitalization)
  Sender: FDA-Public Use
  Company Number: US-ACTELION-A-US2017-162905

PATIENT
  Age: 27 Year
  Sex: Female
  Weight: 64.85 kg

DRUGS (4)
  1. FUROSEMIDE. [Concomitant]
     Active Substance: FUROSEMIDE
     Dosage: 20 MG, QD
  2. OPSUMIT [Suspect]
     Active Substance: MACITENTAN
     Indication: PULMONARY ARTERIAL HYPERTENSION
     Dosage: 10 MG, QD
     Route: 048
     Dates: start: 20171110
  3. ADCIRCA [Concomitant]
     Active Substance: TADALAFIL
  4. REMODULIN [Suspect]
     Active Substance: TREPROSTINIL
     Indication: PRODUCT USED FOR UNKNOWN INDICATION
     Dosage: UNK
     Route: 065
     Dates: end: 201811

REACTIONS (15)
  - Orthostatic hypotension [Recovered/Resolved]
  - Nausea [Unknown]
  - Multiple allergies [Unknown]
  - Catheter site pruritus [Unknown]
  - Loss of consciousness [Unknown]
  - Dehydration [Unknown]
  - Syncope [Recovered/Resolved]
  - Pulmonary hypertension [Unknown]
  - Hypokalaemia [Unknown]
  - Vomiting [Recovered/Resolved]
  - Headache [Unknown]
  - Nasal congestion [Unknown]
  - Decreased appetite [Unknown]
  - Product dose omission [Unknown]
  - Malaise [Unknown]

NARRATIVE: CASE EVENT DATE: 20180712
